FAERS Safety Report 8275051-X (Version None)
Quarter: 2012Q2

REPORT INFORMATION
  Report Type: 
  Country: None (occurrence: None)
  Receive Date: 20120411
  Receipt Date: 20120405
  Transmission Date: 20120825
  Serious: Yes (Other)
  Sender: FDA-Public Use
  Company Number: CHPA2012US006371

PATIENT
  Age: 97 Year
  Sex: Female

DRUGS (1)
  1. VOLTAREN [Suspect]
     Indication: ARTHRITIS
     Dosage: UNK, DAILY
     Route: 061

REACTIONS (4)
  - DRUG DEPENDENCE [None]
  - REBOUND EFFECT [None]
  - MOBILITY DECREASED [None]
  - PAIN [None]
